FAERS Safety Report 17197202 (Version 2)
Quarter: 2020Q1

REPORT INFORMATION
  Report Type: Spontaneous
  Country: DE (occurrence: DE)
  Receive Date: 20191224
  Receipt Date: 20200204
  Transmission Date: 20200409
  Serious: No
  Sender: FDA-Public Use
  Company Number: DE-AMGEN-DEUSP2019211834

PATIENT
  Sex: Female

DRUGS (1)
  1. PROLIA [Suspect]
     Active Substance: DENOSUMAB
     Indication: OSTEOPOROSIS
     Dosage: UNK
     Route: 065
     Dates: start: 201905

REACTIONS (2)
  - Rash [Unknown]
  - Steatocystoma multiplex [Unknown]

NARRATIVE: CASE EVENT DATE: 2019
